FAERS Safety Report 4554833-1 (Version None)
Quarter: 2005Q1

REPORT INFORMATION
  Report Type: 
  Country: None (occurrence: None)
  Receive Date: 20050118
  Receipt Date: 19980821
  Transmission Date: 20050727
  Serious: Yes (Death)
  Sender: FDA-Public Use
  Company Number: US-GLAXOSMITHKLINE-A0289183A

PATIENT
  Age: 74 Year
  Sex: Female
  Weight: 56.69 kg

DRUGS (4)
  1. PAXIL [Suspect]
     Indication: DEPRESSION
     Route: 048
     Dates: start: 19930101, end: 19980101
  2. DILANTIN [Suspect]
     Dates: end: 19980101
  3. PHENOBARBITAL [Concomitant]
     Dates: end: 19980101
  4. MINERAL TAB [Concomitant]

REACTIONS (23)
  - AGITATION [None]
  - ALOPECIA [None]
  - AMNESIA [None]
  - ANTISOCIAL PERSONALITY DISORDER [None]
  - APATHY [None]
  - AURA [None]
  - BRONCHITIS [None]
  - DRUG INTERACTION [None]
  - DRUG WITHDRAWAL SYNDROME [None]
  - DYSPNOEA [None]
  - FATIGUE [None]
  - HEPATIC NEOPLASM MALIGNANT [None]
  - HYPOTHYROIDISM [None]
  - MALAISE [None]
  - OXYGEN SATURATION DECREASED [None]
  - PANCREATIC CARCINOMA [None]
  - PANCREATITIS [None]
  - PERSONALITY CHANGE [None]
  - PNEUMONIA [None]
  - SEDATION [None]
  - SKIN CANCER [None]
  - TONGUE DISCOLOURATION [None]
  - TREMOR [None]
